FAERS Safety Report 4550980-9 (Version None)
Quarter: 2004Q4

REPORT INFORMATION
  Report Type: 
  Country: None (occurrence: None)
  Receive Date: 20041217
  Receipt Date: 20040823
  Transmission Date: 20050328
  Serious: No
  Sender: FDA-Public Use
  Company Number: 2004-BP-07158BP

PATIENT
  Age: 69 Year
  Sex: Male

DRUGS (3)
  1. SPIRIVA [Suspect]
     Indication: CHRONIC OBSTRUCTIVE AIRWAYS DISEASE
     Dosage: 18 MCG *18 MCG) IH
     Route: 055
     Dates: start: 20040601
  2. ADVAIR DISKUS (SERETIDE MITE) [Concomitant]
  3. ALBUTEROL USP [Concomitant]

REACTIONS (2)
  - COUGH [None]
  - THROAT TIGHTNESS [None]
